FAERS Safety Report 25857090 (Version 1)
Quarter: 2025Q3

REPORT INFORMATION
  Report Type: Spontaneous
  Country: US (occurrence: US)
  Receive Date: 20250929
  Receipt Date: 20250929
  Transmission Date: 20251021
  Serious: No
  Sender: AXSOME THERAPEUTICS
  Company Number: US-AXS-AXS202509-001614

PATIENT

DRUGS (1)
  1. AUVELITY [Suspect]
     Active Substance: BUPROPION HYDROCHLORIDE\DEXTROMETHORPHAN HYDROBROMIDE
     Indication: Product used for unknown indication
     Route: 050

REACTIONS (6)
  - Malaise [Unknown]
  - Feeling cold [Unknown]
  - Dizziness [Unknown]
  - Confusional state [Unknown]
  - Hypoaesthesia [Unknown]
  - Overdose [Unknown]

NARRATIVE: CASE EVENT DATE: 20250915
